FAERS Safety Report 10564829 (Version 1)
Quarter: 2014Q4

REPORT INFORMATION
  Report Type: Report from Study
  Country: DE (occurrence: DE)
  Receive Date: 20141105
  Receipt Date: 20141105
  Transmission Date: 20150529
  Serious: Yes (Hospitalization)
  Sender: FDA-Public Use
  Company Number: DE-ABBVIE-14K-062-1302383-00

PATIENT
  Sex: Male

DRUGS (1)
  1. HUMIRA [Suspect]
     Active Substance: ADALIMUMAB
     Indication: RHEUMATOID ARTHRITIS
     Route: 058
     Dates: start: 20090908

REACTIONS (2)
  - Headache [Not Recovered/Not Resolved]
  - Intraocular pressure increased [Not Recovered/Not Resolved]

NARRATIVE: CASE EVENT DATE: 2013
